FAERS Safety Report 5724813-9 (Version None)
Quarter: 2008Q2

REPORT INFORMATION
  Report Type: 
  Country: None (occurrence: None)
  Receive Date: 20080430
  Receipt Date: 20080430
  Transmission Date: 20081010
  Serious: Yes (Hospitalization)
  Sender: FDA-Public Use
  Company Number: None

PATIENT
  Age: 57 Year
  Sex: Male

DRUGS (1)
  1. DOXORUBICIN HCL [Suspect]
     Dosage: 95 MG OTHER IV
     Route: 042
     Dates: start: 20071212, end: 20080221

REACTIONS (1)
  - CARDIAC FAILURE CONGESTIVE [None]
